FAERS Safety Report 7741062-3 (Version None)
Quarter: 2011Q3

REPORT INFORMATION
  Report Type: 
  Country: None (occurrence: None)
  Receive Date: 20110909
  Receipt Date: 20110905
  Transmission Date: 20111222
  Serious: Yes (Other)
  Sender: FDA-Public Use
  Company Number: US-AMGEN-USASP2011045341

PATIENT

DRUGS (2)
  1. COUMADIN [Concomitant]
     Indication: THROMBOSIS PROPHYLAXIS
  2. NPLATE [Suspect]
     Indication: IDIOPATHIC THROMBOCYTOPENIC PURPURA

REACTIONS (1)
  - GASTROINTESTINAL HAEMORRHAGE [None]
